FAERS Safety Report 4442598-3 (Version None)
Quarter: 2004Q3

REPORT INFORMATION
  Report Type: 
  Country: None (occurrence: None)
  Receive Date: 20040903
  Receipt Date: 20040812
  Transmission Date: 20050211
  Serious: Yes (Other)
  Sender: FDA-Public Use
  Company Number: 2004UW15138

PATIENT
  Age: 74 Year
  Sex: Male

DRUGS (1)
  1. CRESTOR [Suspect]

REACTIONS (3)
  - ARTHROPATHY [None]
  - CARCINOMA [None]
  - HYPOTONIA [None]
